FAERS Safety Report 8612229-7 (Version None)
Quarter: 2012Q3

REPORT INFORMATION
  Report Type: 
  Country: None (occurrence: None)
  Receive Date: 20120813
  Receipt Date: 20120813
  Transmission Date: 20120928
  Serious: Yes (Hospitalization, Other)
  Sender: FDA-Public Use
  Company Number: None

PATIENT
  Age: 67 Year
  Sex: Female
  Weight: 74.8435 kg

DRUGS (2)
  1. NORVASC [Suspect]
     Indication: HYPERTENSION
     Dosage: 1 TABLET ONCE DAILY FOR 2 MONTHS
  2. AVAPRO [Concomitant]

REACTIONS (3)
  - BALANCE DISORDER [None]
  - DEAFNESS UNILATERAL [None]
  - TINNITUS [None]
